FAERS Safety Report 23929284 (Version 2)
Quarter: 2025Q3

REPORT INFORMATION
  Report Type: Spontaneous
  Country: US (occurrence: US)
  Receive Date: 20240601
  Receipt Date: 20250703
  Transmission Date: 20251021
  Serious: No
  Sender: RADIUS PHARM
  Company Number: US-RADIUS HEALTH INC.-2024US000773

PATIENT
  Sex: Female

DRUGS (1)
  1. TYMLOS [Suspect]
     Active Substance: ABALOPARATIDE
     Indication: Osteoporosis
     Route: 058

REACTIONS (9)
  - Dizziness [Recovering/Resolving]
  - Oropharyngeal pain [Unknown]
  - Nausea [Recovering/Resolving]
  - Fatigue [Unknown]
  - Cardiac flutter [Recovering/Resolving]
  - Headache [Recovering/Resolving]
  - Heart rate increased [Unknown]
  - Injection site pain [Unknown]
  - Neck pain [Recovering/Resolving]
